FAERS Safety Report 23957715 (Version 1)
Quarter: 2024Q2

REPORT INFORMATION
  Report Type: Spontaneous
  Country: US (occurrence: None)
  Receive Date: 20240608
  Receipt Date: 20240608
  Transmission Date: 20240715
  Serious: Yes (Other)
  Sender: FDA-Public Use
  Company Number: None

PATIENT
  Sex: Male

DRUGS (1)
  1. BIOFREEZE [Suspect]
     Active Substance: MENTHOL
     Indication: Breast cancer female
     Dates: start: 20240607, end: 20240607

REACTIONS (2)
  - Breast cancer [None]
  - Disease complication [None]

NARRATIVE: CASE EVENT DATE: 20240608
